FAERS Safety Report 6818725-7 (Version None)
Quarter: 2010Q3

REPORT INFORMATION
  Report Type: 
  Country: None (occurrence: None)
  Receive Date: 20100706
  Receipt Date: 20100622
  Transmission Date: 20110219
  Serious: Yes (Other)
  Sender: FDA-Public Use
  Company Number: US-ELI_LILLY_AND_COMPANY-US201006006367

PATIENT
  Sex: Female

DRUGS (7)
  1. PROZAC [Suspect]
     Indication: OBSESSIVE-COMPULSIVE DISORDER
     Dosage: 2.5 MG, UNKNOWN
     Route: 048
  2. PROZAC [Suspect]
     Dosage: 5 MG, UNKNOWN
     Route: 048
  3. PROZAC [Suspect]
     Dosage: 10 MG, UNKNOWN
     Route: 048
  4. PROZAC [Suspect]
     Dosage: 20 MG, UNKNOWN
     Route: 048
  5. PROZAC [Suspect]
     Dosage: 25 MG, UNKNOWN
     Route: 065
  6. PROZAC [Suspect]
     Dosage: 27 MG, UNKNOWN
     Route: 065
  7. LORAZEPAM [Concomitant]

REACTIONS (9)
  - ABNORMAL BEHAVIOUR [None]
  - ANAPHYLACTIC REACTION [None]
  - EATING DISORDER [None]
  - HOMICIDAL IDEATION [None]
  - MENTAL DISORDER [None]
  - OFF LABEL USE [None]
  - PANIC REACTION [None]
  - SUICIDAL IDEATION [None]
  - THINKING ABNORMAL [None]
